FAERS Safety Report 19888879 (Version 1)
Quarter: 2021Q3

REPORT INFORMATION
  Report Type: Spontaneous
  Country: US (occurrence: US)
  Receive Date: 20210928
  Receipt Date: 20210928
  Transmission Date: 20211014
  Serious: No
  Sender: FDA-Public Use
  Company Number: US-GLAXOSMITHKLINE-US2021202738

PATIENT
  Age: 72 Year
  Sex: Male

DRUGS (1)
  1. BREO ELLIPTA [Suspect]
     Active Substance: FLUTICASONE FUROATE\VILANTEROL TRIFENATATE
     Indication: CHRONIC OBSTRUCTIVE PULMONARY DISEASE
     Dosage: 100?25 MCG 1 AERO BOW BR ACT DAILY
     Dates: start: 20170102

REACTIONS (3)
  - Illness [Not Recovered/Not Resolved]
  - Nasal congestion [Unknown]
  - Productive cough [Unknown]

NARRATIVE: CASE EVENT DATE: 20210823
